FAERS Safety Report 13134310 (Version 1)
Quarter: 2017Q1

REPORT INFORMATION
  Report Type: Spontaneous
  Country: BE (occurrence: BE)
  Receive Date: 20170120
  Receipt Date: 20170120
  Transmission Date: 20170428
  Serious: Yes (Hospitalization)
  Sender: FDA-Public Use
  Company Number: BE-TEVA-718129ROM

PATIENT
  Age: 20 Year
  Sex: Female
  Weight: 56.4 kg

DRUGS (3)
  1. SEASONIQUE [Suspect]
     Active Substance: ETHINYL ESTRADIOL\LEVONORGESTREL
     Indication: PELVIC PAIN
  2. SEASONIQUE [Suspect]
     Active Substance: ETHINYL ESTRADIOL\LEVONORGESTREL
     Indication: CONTRACEPTION
     Route: 048
     Dates: start: 201604, end: 201611
  3. ELTHYRONE 50 [Concomitant]
     Indication: HYPOTHYROIDISM

REACTIONS (8)
  - Paraesthesia [Unknown]
  - Papilloedema [Unknown]
  - Vomiting [Unknown]
  - Headache [Unknown]
  - Anxiety [Unknown]
  - Chest pain [Unknown]
  - Motor dysfunction [Unknown]
  - Cerebral venous thrombosis [Unknown]

NARRATIVE: CASE EVENT DATE: 20161123
